FAERS Safety Report 12953982 (Version 2)
Quarter: 2016Q4

REPORT INFORMATION
  Report Type: Report from Study
  Country: US (occurrence: US)
  Receive Date: 20161118
  Receipt Date: 20161209
  Transmission Date: 20170207
  Serious: Yes (Hospitalization, Other)
  Sender: FDA-Public Use
  Company Number: US-UCBSA-2016043219

PATIENT
  Age: 68 Year
  Sex: Male
  Weight: 83.4 kg

DRUGS (2)
  1. LACOSAMIDE. [Suspect]
     Active Substance: LACOSAMIDE
     Indication: TRIGEMINAL NEURALGIA
     Dosage: 100 MG IN THE MORNING AND 50 MG AT NIGHT
     Route: 048
  2. INSULIN [Concomitant]
     Active Substance: INSULIN NOS
     Indication: PRODUCT USED FOR UNKNOWN INDICATION
     Dosage: DAILY
     Route: 058

REACTIONS (5)
  - Myocardial infarction [Recovered/Resolved]
  - Coronary artery occlusion [Recovering/Resolving]
  - Intentional product misuse [Unknown]
  - Intestinal obstruction [Recovered/Resolved]
  - Renal failure [Not Recovered/Not Resolved]

NARRATIVE: CASE EVENT DATE: 2016
